FAERS Safety Report 6914902-5 (Version None)
Quarter: 2010Q3

REPORT INFORMATION
  Report Type: 
  Country: None (occurrence: None)
  Receive Date: 20100809
  Receipt Date: 20100726
  Transmission Date: 20110219
  Serious: Yes (Life-Threatening)
  Sender: FDA-Public Use
  Company Number: PHHY2010JP42429

PATIENT
  Sex: Male
  Weight: 20 kg

DRUGS (4)
  1. ZADITEN [Suspect]
     Indication: OTITIS MEDIA
     Dosage: 0.7 G, BID
     Route: 048
     Dates: start: 20100614, end: 20100617
  2. CLAVAMOX [Suspect]
     Dosage: 1.515 MG, BID
     Route: 048
     Dates: start: 20100614, end: 20100617
  3. BIOLACTIS [Concomitant]
     Dosage: 3 G
     Route: 048
     Dates: start: 20100614
  4. MUCODYNE [Concomitant]
     Dosage: 1.2 G
     Route: 048
     Dates: start: 20100614

REACTIONS (2)
  - ABNORMAL BEHAVIOUR [None]
  - MEMORY IMPAIRMENT [None]
